FAERS Safety Report 16934676 (Version 1)
Quarter: 2019Q4

REPORT INFORMATION
  Report Type: Spontaneous
  Country: US (occurrence: US)
  Receive Date: 20191018
  Receipt Date: 20191018
  Transmission Date: 20200122
  Serious: Yes (Hospitalization, Other)
  Sender: FDA-Public Use
  Company Number: US-APOTEX-2019AP023577

PATIENT
  Age: 77 Year
  Sex: Male

DRUGS (1)
  1. ATORVASTATIN [Suspect]
     Active Substance: ATORVASTATIN
     Indication: PRODUCT USED FOR UNKNOWN INDICATION
     Dosage: UNK
     Route: 065

REACTIONS (8)
  - Diaphragm muscle weakness [Recovered/Resolved]
  - Hypercapnia [Recovered/Resolved]
  - Limb discomfort [Recovered/Resolved]
  - Myopathy [Recovered/Resolved]
  - Atelectasis [Recovered/Resolved]
  - Dyspnoea exertional [Recovered/Resolved]
  - Dysphonia [Recovered/Resolved]
  - Asthenia [Recovered/Resolved]
